FAERS Safety Report 12740447 (Version 1)
Quarter: 2016Q3

REPORT INFORMATION
  Report Type: Spontaneous
  Country: US (occurrence: US)
  Receive Date: 20160913
  Receipt Date: 20160913
  Transmission Date: 20161109
  Serious: Yes (Other)
  Sender: FDA-Public Use
  Company Number: US-TARO-2016TAR00431

PATIENT
  Sex: Male
  Weight: 95.24 kg

DRUGS (9)
  1. LIPITOR [Concomitant]
     Active Substance: ATORVASTATIN CALCIUM
  2. VALSARTAN. [Concomitant]
     Active Substance: VALSARTAN
  3. INFATABS [Concomitant]
     Dosage: 50 MG, 1X/DAY
  4. TRIAMTERENE / HYDROCHLOROTHIAZIDE [Concomitant]
  5. INFATABS [Concomitant]
     Dosage: 100 MG, 1X/DAY
  6. ^KOBETAZOL^ [Concomitant]
  7. LAMICTAL [Concomitant]
     Active Substance: LAMOTRIGINE
  8. PHENYTOIN SODIUM EXTENDED [Suspect]
     Active Substance: PHENYTOIN SODIUM
     Indication: EPILEPSY
     Dosage: 200 MG, 2X/DAY
     Route: 048
     Dates: start: 2016
  9. TARGRETIN [Concomitant]
     Active Substance: BEXAROTENE

REACTIONS (9)
  - Road traffic accident [Not Recovered/Not Resolved]
  - Arthralgia [Unknown]
  - Tremor [Not Recovered/Not Resolved]
  - Disturbance in attention [Not Recovered/Not Resolved]
  - Anticonvulsant drug level decreased [Not Recovered/Not Resolved]
  - Seizure [Recovered/Resolved]
  - Muscle spasticity [Not Recovered/Not Resolved]
  - Haematoma [Unknown]
  - Drug ineffective [Not Recovered/Not Resolved]

NARRATIVE: CASE EVENT DATE: 2016
